FAERS Safety Report 8077654-4 (Version None)
Quarter: 2012Q1

REPORT INFORMATION
  Report Type: 
  Country: None (occurrence: None)
  Receive Date: 20120127
  Receipt Date: 20120117
  Transmission Date: 20120608
  Serious: Yes (Hospitalization)
  Sender: FDA-Public Use
  Company Number: BR-MEDIMMUNE-MEDI-0013150

PATIENT
  Sex: Female
  Weight: 11 kg

DRUGS (1)
  1. SYNAGIS [Suspect]
     Dates: start: 20100801, end: 20100801

REACTIONS (3)
  - PNEUMONIA [None]
  - RESPIRATORY DISORDER [None]
  - PYREXIA [None]
